FAERS Safety Report 6054945-X (Version None)
Quarter: 2009Q1

REPORT INFORMATION
  Report Type: 
  Country: None (occurrence: None)
  Receive Date: 20090128
  Receipt Date: 20090123
  Transmission Date: 20090719
  Serious: Yes (Life-Threatening, Hospitalization, Other)
  Sender: FDA-Public Use
  Company Number: PHHY2008BR33528

PATIENT
  Age: 42 Year
  Sex: Male

DRUGS (5)
  1. CLOZAPINE [Suspect]
     Indication: SCHIZOPHRENIA
     Dosage: 100 MG, UNK
     Route: 048
     Dates: start: 20080506
  2. CLOZAPINE [Suspect]
     Dosage: HALF TABLET BID, IN THE MORNING AND AT NIGHT
  3. CLOZAPINE [Suspect]
     Dosage: HALF TABLET BID, IN THE MORNING AND AT NIGHT
  4. CLOZAPINE [Suspect]
     Dosage: ONE TABLET BID, IN THE MORNING AND AT NIGHT
  5. CLOZAPINE [Suspect]
     Dosage: UNK
     Dates: end: 20080701

REACTIONS (14)
  - ANAEMIA [None]
  - ATROPHY [None]
  - BLOOD DISORDER [None]
  - BONE MARROW DISORDER [None]
  - COMA [None]
  - DEHYDRATION [None]
  - GAIT DISTURBANCE [None]
  - IMPAIRED HEALING [None]
  - NEUTROPENIA [None]
  - PLATELET COUNT ABNORMAL [None]
  - PYREXIA [None]
  - SEPSIS [None]
  - THROMBOCYTOPENIA [None]
  - WHITE BLOOD CELL COUNT DECREASED [None]
